FAERS Safety Report 11438571 (Version 1)
Quarter: 2015Q3

REPORT INFORMATION
  Report Type: Spontaneous
  Country: US (occurrence: US)
  Receive Date: 20150901
  Receipt Date: 20150901
  Transmission Date: 20151125
  Serious: No
  Sender: FDA-Public Use
  Company Number: US-ROCHE-1107913

PATIENT
  Sex: Female
  Weight: 83.08 kg

DRUGS (5)
  1. RIBASPHERE [Suspect]
     Active Substance: RIBAVIRIN
     Indication: CHRONIC HEPATITIS C
     Route: 048
     Dates: start: 20120709
  2. PEGASYS [Suspect]
     Active Substance: PEGINTERFERON ALFA-2A
     Indication: CHRONIC HEPATITIS C
     Route: 058
     Dates: start: 20120709
  3. PROZAC [Concomitant]
     Active Substance: FLUOXETINE HYDROCHLORIDE
     Indication: DEPRESSION
     Route: 065
  4. SEROQUEL [Concomitant]
     Active Substance: QUETIAPINE FUMARATE
     Indication: ANXIETY DISORDER
     Dosage: PRESCRIBED DOSE 25MG
     Route: 065
  5. TELAPREVIR [Suspect]
     Active Substance: TELAPREVIR
     Indication: CHRONIC HEPATITIS C
     Route: 065
     Dates: start: 20120709

REACTIONS (15)
  - Insomnia [Unknown]
  - Head discomfort [Unknown]
  - Rash vesicular [Unknown]
  - Dysgeusia [Unknown]
  - Oral pain [Unknown]
  - Tremor [Unknown]
  - Depression [Unknown]
  - Dehydration [Unknown]
  - Anxiety [Unknown]
  - Migraine [Unknown]
  - Diarrhoea [Unknown]
  - Anger [Unknown]
  - Pyrexia [Unknown]
  - Weight decreased [Unknown]
  - Chapped lips [Unknown]
